FAERS Safety Report 17160255 (Version 1)
Quarter: 2019Q4

REPORT INFORMATION
  Report Type: Spontaneous
  Country: DE (occurrence: DE)
  Receive Date: 20191216
  Receipt Date: 20191216
  Transmission Date: 20200122
  Serious: Yes (Death, Hospitalization, Congenital Anomaly, Other)
  Sender: FDA-Public Use
  Company Number: DE-MYLANLABS-2019M1122728

PATIENT
  Age: 1 Day
  Sex: Male
  Weight: 2.9 kg

DRUGS (3)
  1. L-THYROXIN                         /00068002/ [Concomitant]
     Active Substance: LEVOTHYROXINE SODIUM
     Indication: HYPOTHYROIDISM
     Dosage: 75 [?G/D ]
     Route: 064
     Dates: start: 20180309, end: 20181207
  2. LAMIVUDINE. [Suspect]
     Active Substance: LAMIVUDINE
     Indication: CHRONIC HEPATITIS B
     Dosage: UNK
     Route: 064
     Dates: start: 20180309, end: 20181207
  3. PROPESS [Concomitant]
     Active Substance: DINOPROSTONE
     Indication: LABOUR INDUCTION
     Dosage: 10 [MG/D ]
     Route: 064
     Dates: start: 20181206, end: 20181206

REACTIONS (13)
  - Death neonatal [Fatal]
  - Persistent foetal circulation [Unknown]
  - Small for dates baby [Not Recovered/Not Resolved]
  - Neonatal seizure [Unknown]
  - Areflexia [Unknown]
  - Newborn persistent pulmonary hypertension [Not Recovered/Not Resolved]
  - Neonatal pneumothorax [Unknown]
  - Cryptorchism [Not Recovered/Not Resolved]
  - Neonatal respiratory failure [Unknown]
  - Infantile apnoea [Unknown]
  - Foetal exposure during pregnancy [Recovered/Resolved]
  - Renal failure neonatal [Unknown]
  - Hypoxic-ischaemic encephalopathy [Unknown]

NARRATIVE: CASE EVENT DATE: 20181207
